FAERS Safety Report 23497391 (Version 2)
Quarter: 2024Q3

REPORT INFORMATION
  Report Type: Spontaneous
  Country: US (occurrence: US)
  Receive Date: 20240208
  Receipt Date: 20240828
  Transmission Date: 20241016
  Serious: No
  Sender: SANOFI AVENTIS
  Company Number: US-SA-SAC20240201001481

PATIENT
  Age: 62 Year
  Sex: Female

DRUGS (1)
  1. DUPIXENT [Suspect]
     Active Substance: DUPILUMAB
     Indication: Dermatitis atopic
     Dosage: 300 MG, QOW
     Route: 058
     Dates: start: 2023

REACTIONS (6)
  - Asthma [Unknown]
  - Impaired quality of life [Unknown]
  - Eczema [Recovered/Resolved]
  - Dermatitis atopic [Recovered/Resolved]
  - Rash macular [Unknown]
  - Injection site swelling [Recovered/Resolved]
